FAERS Safety Report 6547058-1 (Version None)
Quarter: 2010Q1

REPORT INFORMATION
  Report Type: 
  Country: None (occurrence: None)
  Receive Date: 20100119
  Receipt Date: 20100104
  Transmission Date: 20100710
  Serious: Yes (Hospitalization, Other)
  Sender: FDA-Public Use
  Company Number: 2010S1000108

PATIENT
  Age: 59 Year
  Sex: Female

DRUGS (8)
  1. PHOSPHOSODA FLAVOR NOT SPECIFIED [Suspect]
     Indication: COLONOSCOPY
     Dosage: PO
     Route: 048
     Dates: start: 20081023
  2. PHOSPHOSODA FLAVOR NOT SPECIFIED [Suspect]
     Indication: OESOPHAGOGASTRODUODENOSCOPY
     Dosage: PO
     Route: 048
     Dates: start: 20081023
  3. IRON [Concomitant]
  4. AMLODIPINE [Concomitant]
  5. METOPROLOL [Concomitant]
  6. PREMARIN [Concomitant]
  7. OMEPRAZOLE [Concomitant]
  8. DARIFENACIN [Concomitant]

REACTIONS (5)
  - DEHYDRATION [None]
  - HYPOPHAGIA [None]
  - MEDICATION ERROR [None]
  - RENAL FAILURE ACUTE [None]
  - RENAL FAILURE CHRONIC [None]
